FAERS Safety Report 23689546 (Version 4)
Quarter: 2024Q4

REPORT INFORMATION
  Report Type: Report from Study
  Country: US (occurrence: US)
  Receive Date: 20240331
  Receipt Date: 20241216
  Transmission Date: 20250115
  Serious: Yes (Hospitalization)
  Sender: NOVARTIS
  Company Number: US-002147023-NVSC2024US055883

PATIENT
  Age: 47 Year
  Sex: Male

DRUGS (1)
  1. KESIMPTA [Suspect]
     Active Substance: OFATUMUMAB
     Indication: Relapsing multiple sclerosis
     Dosage: 20 MG, QMO
     Route: 030
     Dates: start: 20240108, end: 20240305

REACTIONS (5)
  - Infection [Unknown]
  - Back pain [Unknown]
  - Hyperhidrosis [Unknown]
  - Pain in extremity [Unknown]
  - Somnolence [Unknown]

NARRATIVE: CASE EVENT DATE: 20240312
